FAERS Safety Report 8778909 (Version 1)
Quarter: 2012Q4

REPORT INFORMATION
  Report Type: 
  Country: DE (occurrence: DE)
  Receive Date: 20120912
  Receipt Date: 20120912
  Transmission Date: 20130627
  Serious: Yes (Other)
  Sender: FDA-Public Use
  Company Number: DE-ELI_LILLY_AND_COMPANY-DE201209000133

PATIENT
  Sex: Male

DRUGS (3)
  1. STRATTERA [Suspect]
     Indication: ATTENTION DEFICIT/HYPERACTIVITY DISORDER
     Dosage: 60 mg, UNK
     Route: 048
  2. STRATTERA [Suspect]
     Dosage: 80 mg, UNK
     Route: 048
  3. DIPIPERON [Concomitant]
     Dosage: UNK, unknown

REACTIONS (1)
  - Electrocardiogram QT prolonged [Not Recovered/Not Resolved]
